FAERS Safety Report 10236387 (Version 1)
Quarter: 2014Q2

REPORT INFORMATION
  Report Type: Report from Study
  Country: MX (occurrence: MX)
  Receive Date: 20140613
  Receipt Date: 20140613
  Transmission Date: 20141212
  Serious: Yes (Other)
  Sender: FDA-Public Use
  Company Number: PHHY2014MX073362

PATIENT
  Age: 82 Year
  Sex: Female

DRUGS (2)
  1. DIOVAN [Suspect]
     Indication: HYPERTENSION
     Dosage: 1 TABLET (160 MG) DAILY
     Route: 048
     Dates: start: 201007
  2. DETRUSITOL [Concomitant]
     Dosage: 1 UKN, DAILY
     Dates: start: 201405

REACTIONS (1)
  - Bladder cancer [Recovered/Resolved]
